FAERS Safety Report 8106307-9 (Version None)
Quarter: 2012Q1

REPORT INFORMATION
  Report Type: 
  Country: None (occurrence: None)
  Receive Date: 20120202
  Receipt Date: 20120118
  Transmission Date: 20120608
  Serious: Yes (Other)
  Sender: FDA-Public Use
  Company Number: US-JNJFOC-20120200273

PATIENT
  Age: 44 Year
  Sex: Female
  Weight: 111.11 kg

DRUGS (6)
  1. DIOVAN HCT [Concomitant]
  2. PREDNISONE TAB [Concomitant]
  3. ENBREL [Suspect]
     Indication: RHEUMATOID ARTHRITIS
     Dates: start: 20020101, end: 20110901
  4. CITALOPRAM HYDROBROMIDE [Concomitant]
  5. IBUPROFEN [Suspect]
     Indication: PRODUCT USED FOR UNKNOWN INDICATION
     Route: 065
  6. SYNTHROID [Concomitant]

REACTIONS (7)
  - URINARY TRACT INFECTION [None]
  - UPPER RESPIRATORY TRACT INFECTION [None]
  - DEHYDRATION [None]
  - RHEUMATOID ARTHRITIS [None]
  - FATIGUE [None]
  - RENAL FAILURE [None]
  - URINE OUTPUT INCREASED [None]
